FAERS Safety Report 16866563 (Version 1)
Quarter: 2019Q3

REPORT INFORMATION
  Report Type: Spontaneous
  Country: US (occurrence: US)
  Receive Date: 20190930
  Receipt Date: 20190930
  Transmission Date: 20191005
  Serious: No
  Sender: FDA-Public Use
  Company Number: US-ALLERGAN-1928442US

PATIENT
  Sex: Female

DRUGS (7)
  1. VRAYLAR [Suspect]
     Active Substance: CARIPRAZINE
     Indication: BIPOLAR DISORDER
     Dosage: 20 MG, QHS
     Route: 048
     Dates: start: 201906, end: 20190620
  2. TOPAMATE [Concomitant]
     Active Substance: TOPIRAMATE
     Indication: MIGRAINE
  3. UNSPECIFIED ANXIETY MEDICATION [Concomitant]
     Active Substance: UNSPECIFIED INGREDIENT
     Indication: ANXIETY
     Dosage: UNK
  4. VRAYLAR [Suspect]
     Active Substance: CARIPRAZINE
     Dosage: 10 MG, QHS
     Route: 048
     Dates: start: 201906, end: 201906
  5. TOPAMATE [Concomitant]
     Active Substance: TOPIRAMATE
     Indication: MOOD SWINGS
     Dosage: UNK
  6. GABAPENTIN. [Concomitant]
     Active Substance: GABAPENTIN
     Indication: MUSCLE SPASMS
     Dosage: UNK
  7. OXYCONTIN [Concomitant]
     Active Substance: OXYCODONE HYDROCHLORIDE
     Indication: PAIN
     Dosage: UNK

REACTIONS (5)
  - Overdose [Unknown]
  - Adverse event [Unknown]
  - Vaginal haemorrhage [Recovered/Resolved]
  - Muscle spasms [Unknown]
  - Haemoglobin decreased [Unknown]

NARRATIVE: CASE EVENT DATE: 201906
